FAERS Safety Report 4294344-4 (Version None)
Quarter: 2004Q1

REPORT INFORMATION
  Report Type: 
  Country: None (occurrence: None)
  Receive Date: 20040211
  Receipt Date: 20030811
  Transmission Date: 20041129
  Serious: Yes (Hospitalization)
  Sender: FDA-Public Use
  Company Number: A0420994A

PATIENT
  Age: 52 Year
  Sex: Male

DRUGS (1)
  1. MELPHALAN INJECTION (MELPHALAN) [Suspect]
     Indication: MULTIPLE MYELOMA
     Dosage: 450 MG, INTRAVENOUS
     Route: 042
     Dates: start: 20030716, end: 20030716

REACTIONS (5)
  - ASTHENIA [None]
  - C-REACTIVE PROTEIN INCREASED [None]
  - LOOSE STOOLS [None]
  - PANCYTOPENIA [None]
  - PYREXIA [None]
